FAERS Safety Report 5966000-5 (Version None)
Quarter: 2008Q4

REPORT INFORMATION
  Report Type: 
  Country: None (occurrence: None)
  Receive Date: 20081121
  Receipt Date: 20081121
  Transmission Date: 20090506
  Serious: Yes (Other)
  Sender: FDA-Public Use
  Company Number: None

PATIENT
  Age: 42 Year
  Sex: Female
  Weight: 61.6892 kg

DRUGS (7)
  1. CITALOPRAM HYDROBROMIDE [Suspect]
     Indication: ANXIETY
     Dosage: 20MG DAILY PO
     Route: 048
     Dates: start: 19991222, end: 20081117
  2. CITALOPRAM HYDROBROMIDE [Suspect]
     Indication: DEPRESSION
     Dosage: 20MG DAILY PO
     Route: 048
     Dates: start: 19991222, end: 20081117
  3. BUPROPION HCL [Concomitant]
  4. COZAAR [Concomitant]
  5. DOXYCYCLINE [Concomitant]
  6. CELEXA [Suspect]
  7. LEXAPRO [Suspect]

REACTIONS (2)
  - IMPAIRED HEALING [None]
  - INCREASED TENDENCY TO BRUISE [None]
